FAERS Safety Report 14373399 (Version 1)
Quarter: 2018Q1

REPORT INFORMATION
  Report Type: Spontaneous
  Country: GB (occurrence: GB)
  Receive Date: 20180110
  Receipt Date: 20180110
  Transmission Date: 20180509
  Serious: Yes (Other)
  Sender: FDA-Public Use
  Company Number: GB-009507513-1801GBR000560

PATIENT
  Age: 35 Year
  Sex: Male

DRUGS (2)
  1. MIRTAZAPINE. [Suspect]
     Active Substance: MIRTAZAPINE
     Indication: DEPRESSION SUICIDAL
     Route: 048
     Dates: start: 20171124
  2. SERTRALINE HYDROCHLORIDE. [Concomitant]
     Active Substance: SERTRALINE HYDROCHLORIDE

REACTIONS (3)
  - Irritability [Unknown]
  - Aggression [Unknown]
  - Crying [Unknown]

NARRATIVE: CASE EVENT DATE: 20171124
